FAERS Safety Report 7622975-X (Version None)
Quarter: 2011Q3

REPORT INFORMATION
  Report Type: 
  Country: None (occurrence: None)
  Receive Date: 20110720
  Receipt Date: 20110708
  Transmission Date: 20111222
  Serious: Yes (Other)
  Sender: FDA-Public Use
  Company Number: CA-JNJFOC-20110704326

PATIENT
  Sex: Female
  Weight: 85 kg

DRUGS (10)
  1. ZOPICLONE [Concomitant]
  2. LAMOTRIGINE [Concomitant]
  3. HYDROMORPHONE HCL [Concomitant]
  4. QUETIAPINE [Concomitant]
  5. VENLAFAXINE HYDROCHLORIDE (EFFEXOR XR) [Concomitant]
  6. REMICADE [Suspect]
     Indication: ANKYLOSING SPONDYLITIS
     Route: 042
     Dates: start: 20110609
  7. PREDNISONE [Concomitant]
  8. PANTOPRAZOLE SODIUM [Concomitant]
     Dosage: BEFORE MEALS
  9. LACTULOSE [Concomitant]
  10. DIMENHYDRINATE [Concomitant]
     Dosage: PRN

REACTIONS (4)
  - SWELLING FACE [None]
  - MOBILITY DECREASED [None]
  - ARTHRALGIA [None]
  - JOINT SWELLING [None]
